FAERS Safety Report 20919568 (Version 1)
Quarter: 2022Q2

REPORT INFORMATION
  Report Type: Spontaneous
  Country: US (occurrence: None)
  Receive Date: 20220603
  Receipt Date: 20220603
  Transmission Date: 20220720
  Serious: Yes (Other)
  Sender: FDA-Public Use
  Company Number: None

PATIENT
  Age: 81 Year
  Sex: Female
  Weight: 90 kg

DRUGS (1)
  1. NITROFURANTOIN [Suspect]
     Active Substance: NITROFURANTOIN
     Indication: Urinary tract infection
     Route: 048
     Dates: start: 20220528, end: 20220601

REACTIONS (5)
  - Gait disturbance [None]
  - Peroneal nerve palsy [None]
  - Dysstasia [None]
  - Walking aid user [None]
  - Asthenia [None]

NARRATIVE: CASE EVENT DATE: 20220601
